FAERS Safety Report 15483768 (Version 2)
Quarter: 2019Q1

REPORT INFORMATION
  Report Type: Spontaneous
  Country: US (occurrence: US)
  Receive Date: 20181010
  Receipt Date: 20190315
  Transmission Date: 20190417
  Serious: Yes (Hospitalization, Other)
  Sender: FDA-Public Use
  Company Number: US-PFIZER INC-2018409765

PATIENT
  Age: 51 Year
  Sex: Female

DRUGS (7)
  1. GABAPENTIN. [Suspect]
     Active Substance: GABAPENTIN
     Indication: OCCIPITAL NEURALGIA
     Dosage: 800 MG, 3X/DAY
     Dates: start: 201602
  2. PAROXETINE. [Concomitant]
     Active Substance: PAROXETINE
     Dosage: 60 MG, DAILY (40 MG AND 20 MG ONCE A DAY)
     Dates: start: 2018, end: 20180210
  3. ZOLOFT [Concomitant]
     Active Substance: SERTRALINE HYDROCHLORIDE
     Dosage: 50 MG, 1X/DAY
     Dates: start: 201804
  4. TRAZODONE [Concomitant]
     Active Substance: TRAZODONE HYDROCHLORIDE
     Indication: SLEEP DISORDER
     Dosage: 10 MG, 1X/DAY
     Dates: start: 201807, end: 201808
  5. TRAMADOL. [Suspect]
     Active Substance: TRAMADOL
     Indication: PAIN
     Dosage: UNK, 2X/DAY
     Dates: start: 201702
  6. TYLENOL [Concomitant]
     Active Substance: ACETAMINOPHEN
     Dosage: 1500 MG, 3X/DAY
     Dates: start: 201601
  7. CYCLOBENZAPRINE [CYCLOBENZAPRINE HYDROCHLORIDE] [Concomitant]
     Dosage: 20 MG, 3X/DAY
     Dates: start: 201601, end: 201901

REACTIONS (21)
  - Mental impairment [Unknown]
  - Paraesthesia [Unknown]
  - Gait disturbance [Unknown]
  - Decreased appetite [Unknown]
  - Amnesia [Unknown]
  - Fatigue [Unknown]
  - Dry mouth [Unknown]
  - Pain [Unknown]
  - Impaired driving ability [Unknown]
  - Viral infection [Unknown]
  - Nasal dryness [Unknown]
  - Vision blurred [Unknown]
  - Nightmare [Unknown]
  - Dry eye [Unknown]
  - Pain of skin [Unknown]
  - Insomnia [Unknown]
  - Visual acuity reduced [Unknown]
  - Dizziness [Unknown]
  - Feeling abnormal [Unknown]
  - Drug ineffective for unapproved indication [Unknown]
  - Dysarthria [Unknown]

NARRATIVE: CASE EVENT DATE: 201602
